FAERS Safety Report 6695297-1 (Version None)
Quarter: 2010Q2

REPORT INFORMATION
  Report Type: 
  Country: None (occurrence: None)
  Receive Date: 20100423
  Receipt Date: 20100420
  Transmission Date: 20101027
  Serious: Yes (Hospitalization)
  Sender: FDA-Public Use
  Company Number: IT-MERCK-1004ITA00020

PATIENT
  Age: 85 Year
  Sex: Male

DRUGS (5)
  1. MODURETIC 5-50 [Suspect]
     Indication: HYPERTENSION
     Route: 048
     Dates: start: 19990215, end: 20091210
  2. HYZAAR [Suspect]
     Indication: HYPERTENSION
     Route: 048
     Dates: start: 19990215, end: 20091210
  3. GLIBOMET [Suspect]
     Indication: DIABETES MELLITUS
     Route: 048
     Dates: start: 19990215, end: 20091210
  4. ASPIRIN [Concomitant]
     Indication: HYPERTENSION
     Route: 048
     Dates: start: 19990215
  5. ALFUZOSIN HCL [Concomitant]
     Indication: BENIGN PROSTATIC HYPERPLASIA
     Route: 048
     Dates: start: 20000505

REACTIONS (3)
  - DIABETES MELLITUS [None]
  - RENAL FAILURE ACUTE [None]
  - RHABDOMYOLYSIS [None]
